FAERS Safety Report 5757867-4 (Version None)
Quarter: 2008Q2

REPORT INFORMATION
  Report Type: 
  Country: None (occurrence: None)
  Receive Date: 20080603
  Receipt Date: 20080519
  Transmission Date: 20081010
  Serious: Yes (Hospitalization, Other)
  Sender: FDA-Public Use
  Company Number: PHEH2007US03186

PATIENT
  Sex: Female
  Weight: 70.294 kg

DRUGS (6)
  1. ESTRADERM [Suspect]
     Indication: MENOPAUSAL SYMPTOMS
     Route: 061
     Dates: start: 19900101
  2. PREMARIN [Suspect]
     Indication: MENOPAUSAL SYMPTOMS
     Dates: start: 19750101, end: 19940101
  3. OGEN [Suspect]
     Indication: MENOPAUSAL SYMPTOMS
     Dates: start: 19890101
  4. ESTRACE [Suspect]
     Indication: MENOPAUSAL SYMPTOMS
     Dates: start: 19900101
  5. PREMPRO [Suspect]
     Indication: MENOPAUSAL SYMPTOMS
     Dosage: UNK, UNK
     Dates: start: 19750101, end: 19910101
  6. BENADRYL [Concomitant]
     Dosage: UNK, PRN

REACTIONS (41)
  - ADRENAL INSUFFICIENCY [None]
  - ANAEMIA [None]
  - ANXIETY [None]
  - ARRHYTHMIA SUPRAVENTRICULAR [None]
  - ASTHENIA [None]
  - ATRIAL FIBRILLATION [None]
  - BACK PAIN [None]
  - BONE DENSITY DECREASED [None]
  - BREAST CANCER IN SITU [None]
  - CHILLS [None]
  - CHOLECYSTECTOMY [None]
  - CHOLECYSTITIS [None]
  - CHRONIC SINUSITIS [None]
  - DIABETES MELLITUS [None]
  - DIVERTICULUM [None]
  - DIZZINESS [None]
  - FATIGUE [None]
  - GASTROOESOPHAGEAL REFLUX DISEASE [None]
  - GLUCOSE TOLERANCE IMPAIRED [None]
  - HAEMATURIA [None]
  - HIATUS HERNIA [None]
  - HYPERVENTILATION [None]
  - HYPOAESTHESIA [None]
  - HYPOGLYCAEMIA [None]
  - HYPOTENSION [None]
  - IRRITABLE BOWEL SYNDROME [None]
  - MACULAR DEGENERATION [None]
  - MAMMOGRAM ABNORMAL [None]
  - MUSCLE SPASMS [None]
  - NERVE INJURY [None]
  - OESOPHAGEAL DILATATION [None]
  - OESTROGEN RECEPTOR ASSAY POSITIVE [None]
  - OTITIS MEDIA [None]
  - PARAESTHESIA [None]
  - PROGESTERONE RECEPTOR ASSAY POSITIVE [None]
  - RENAL STONE REMOVAL [None]
  - SOMATISATION DISORDER [None]
  - SYNCOPE [None]
  - TENDERNESS [None]
  - VENTRICULAR EXTRASYSTOLES [None]
  - WEIGHT INCREASED [None]
